FAERS Safety Report 13453845 (Version 1)
Quarter: 2017Q2

REPORT INFORMATION
  Report Type: Report from Study
  Country: US (occurrence: US)
  Receive Date: 20170418
  Receipt Date: 20170418
  Transmission Date: 20170830
  Serious: Yes (Other)
  Sender: FDA-Public Use
  Company Number: US-CORCEPT THERAPEUTICS INC.-US-2017CRT000285

PATIENT

DRUGS (3)
  1. KORLYM [Suspect]
     Active Substance: MIFEPRISTONE
     Indication: CUSHING^S SYNDROME
     Dosage: 300 MG, QD
     Route: 048
     Dates: start: 20160426, end: 201605
  2. KORLYM [Suspect]
     Active Substance: MIFEPRISTONE
     Indication: HYPERLIPIDAEMIA
     Dosage: 300 MG, BID
     Route: 048
     Dates: start: 201605, end: 201703
  3. KORLYM [Suspect]
     Active Substance: MIFEPRISTONE
     Indication: VITAMIN D DEFICIENCY

REACTIONS (1)
  - Oesophageal carcinoma [Not Recovered/Not Resolved]

NARRATIVE: CASE EVENT DATE: 201703
